FAERS Safety Report 7571038-0 (Version None)
Quarter: 2011Q2

REPORT INFORMATION
  Report Type: 
  Country: None (occurrence: None)
  Receive Date: 20110624
  Receipt Date: 20110617
  Transmission Date: 20111010
  Serious: Yes (Other)
  Sender: FDA-Public Use
  Company Number: CO-ROCHE-783340

PATIENT
  Sex: Female

DRUGS (1)
  1. HERCEPTIN [Suspect]
     Indication: BREAST CANCER
     Dosage: FREQUENCY: PER 21 DAYS
     Route: 042
     Dates: start: 20101111

REACTIONS (1)
  - CARDIAC VALVE DISEASE [None]
